FAERS Safety Report 12808373 (Version 1)
Quarter: 2016Q4

REPORT INFORMATION
  Report Type: Spontaneous
  Country: IR (occurrence: IR)
  Receive Date: 20161004
  Receipt Date: 20161004
  Transmission Date: 20170207
  Serious: Yes (Hospitalization)
  Sender: FDA-Public Use
  Company Number: IR-HQ SPECIALTY-IR-2016INT000905

PATIENT
  Age: 54 Year
  Sex: Female

DRUGS (4)
  1. G-CSF [Concomitant]
     Active Substance: GRANULOCYTE COLONY-STIMULATING FACTOR NOS
     Indication: HEPATOBILIARY CANCER
     Dosage: UNK
  2. 5-FU [Suspect]
     Active Substance: FLUOROURACIL
     Indication: HEPATOBILIARY CANCER
     Dosage: 600 MG/M2, CONTINUOUS INFUSION FOR 21 HOURS ON DAYS 1,2,3, AND 4, Q 21D (2 CYCLES)
  3. CISPLATIN. [Suspect]
     Active Substance: CISPLATIN
     Indication: HEPATOBILIARY CANCER
     Dosage: 60 MG/M2, DAY 1, Q21D, (2 CYCLES)
  4. GEMCITABINE [Suspect]
     Active Substance: GEMCITABINE\GEMCITABINE HYDROCHLORIDE
     Indication: HEPATOBILIARY CANCER
     Dosage: 1250 MG/M2, DAYS 1 AND 8, Q21D (2 CYCLES)

REACTIONS (12)
  - Pyrexia [Recovered/Resolved]
  - Headache [Recovered/Resolved]
  - Dermatitis bullous [Recovered/Resolved]
  - Drug interaction [Recovered/Resolved]
  - Blister [Recovered/Resolved]
  - Oral mucosal blistering [Recovered/Resolved]
  - Stevens-Johnson syndrome [Recovered/Resolved]
  - Malaise [Recovered/Resolved]
  - Epidermal necrosis [Recovered/Resolved]
  - Pain [Recovered/Resolved]
  - Arthralgia [Recovered/Resolved]
  - Oropharyngeal pain [Recovered/Resolved]
